FAERS Safety Report 6099965-4 (Version None)
Quarter: 2009Q1

REPORT INFORMATION
  Report Type: 
  Country: None (occurrence: None)
  Receive Date: 20090303
  Receipt Date: 20090226
  Transmission Date: 20090719
  Serious: Yes (Death)
  Sender: FDA-Public Use
  Company Number: PHHY2009MX07245

PATIENT
  Age: 75 Year
  Sex: Female

DRUGS (1)
  1. DIOVAN HCT [Suspect]
     Indication: HYPERTENSION
     Dosage: 1  TABLET (160/25 MG) PER DAY
     Route: 048
     Dates: start: 20070101

REACTIONS (2)
  - PNEUMONIA [None]
  - RENAL DISORDER [None]
